FAERS Safety Report 4408715-6 (Version None)
Quarter: 2004Q3

REPORT INFORMATION
  Report Type: 
  Country: None (occurrence: None)
  Receive Date: 20040727
  Receipt Date: 20040706
  Transmission Date: 20050211
  Serious: Yes (Other)
  Sender: FDA-Public Use
  Company Number: PHEH2004US07260

PATIENT
  Age: 68 Year
  Sex: Male

DRUGS (6)
  1. ZOMETA [Suspect]
     Indication: MULTIPLE MYELOMA
     Dosage: 4 MG, QMO
     Route: 042
     Dates: start: 20030201
  2. VINCRISTINE [Concomitant]
  3. PREDNISONE [Concomitant]
  4. DECADRON [Concomitant]
  5. THALIDOMIDE [Concomitant]
     Indication: MULTIPLE MYELOMA
  6. SEPTOCAINE [Concomitant]
     Indication: SURGERY
     Dosage: 4%

REACTIONS (5)
  - BONE DEBRIDEMENT [None]
  - FEMUR FRACTURE [None]
  - OSTEOMYELITIS [None]
  - TOOTH DISORDER [None]
  - TOOTH EXTRACTION [None]
